FAERS Safety Report 8343147-X (Version None)
Quarter: 2012Q2

REPORT INFORMATION
  Report Type: 
  Country: None (occurrence: None)
  Receive Date: 20120508
  Receipt Date: 20120502
  Transmission Date: 20120825
  Serious: Yes (Other)
  Sender: FDA-Public Use
  Company Number: NL-PFIZER INC-2012109919

PATIENT
  Age: 70 Year
  Sex: Male
  Weight: 87 kg

DRUGS (4)
  1. PANTOPRAZOLE [Suspect]
     Indication: HELICOBACTER INFECTION
     Dosage: 3 DF, 2 IN 1
     Route: 048
     Dates: start: 20120405, end: 20120413
  2. AMOXICILLIN TRIHYDRATE [Suspect]
     Indication: HELICOBACTER INFECTION
     Dosage: 3 DF, 2 IN 1
     Route: 048
     Dates: start: 20120405, end: 20120413
  3. CLARITHROMYCIN [Suspect]
     Indication: HELICOBACTER INFECTION
     Dosage: 3 DF, 2 IN 1
     Route: 048
     Dates: start: 20120405, end: 20120413
  4. SOTALOL [Concomitant]
     Indication: RENAL FAILURE
     Dosage: 40 MG, 1X/DAY
     Dates: start: 20070101

REACTIONS (4)
  - LOCALISED OEDEMA [None]
  - NAUSEA [None]
  - DIARRHOEA [None]
  - OEDEMA PERIPHERAL [None]
